FAERS Safety Report 7689303-5 (Version None)
Quarter: 2011Q3

REPORT INFORMATION
  Report Type: 
  Country: None (occurrence: None)
  Receive Date: 20110817
  Receipt Date: 20110808
  Transmission Date: 20111222
  Serious: Yes (Hospitalization, Other)
  Sender: FDA-Public Use
  Company Number: US-BAYER-201039534NA

PATIENT
  Age: 32 Year
  Sex: Female
  Weight: 70.295 kg

DRUGS (5)
  1. IBUPROFEN [Concomitant]
     Dosage: 600 MG, PRN
     Route: 048
  2. YASMIN [Suspect]
     Indication: ORAL CONTRACEPTION
  3. METHIMAZOLE [Concomitant]
     Dosage: 10 MG, QD
     Route: 048
  4. YASMIN [Suspect]
     Indication: MENSTRUAL CYCLE MANAGEMENT
     Dosage: UNK UNK, UNK
     Route: 048
     Dates: start: 20040901, end: 20061110
  5. YASMIN [Suspect]
     Indication: PREMENSTRUAL SYNDROME

REACTIONS (2)
  - PAIN IN EXTREMITY [None]
  - DEEP VEIN THROMBOSIS [None]
